FAERS Safety Report 7698892-6 (Version None)
Quarter: 2011Q3

REPORT INFORMATION
  Report Type: 
  Country: None (occurrence: None)
  Receive Date: 20110819
  Receipt Date: 20110817
  Transmission Date: 20111222
  Serious: Yes (Death)
  Sender: FDA-Public Use
  Company Number: PHHY2011BR26930

PATIENT
  Sex: Female

DRUGS (4)
  1. LEXOTAN [Concomitant]
     Indication: SLEEP DISORDER
     Dosage: 2 MG, UNK
  2. ANCORON [Concomitant]
     Indication: ARRHYTHMIA
     Dosage: 100 MG, UNK
  3. EXELON [Suspect]
     Indication: DEMENTIA ALZHEIMER'S TYPE
     Dosage: 9MG/5CM^2
     Route: 062
  4. BUDESONIDE W/FORMOTEROL FUMARATE [Suspect]
     Dosage: UNK UKN, UNK

REACTIONS (1)
  - SEPSIS [None]
